FAERS Safety Report 25637576 (Version 2)
Quarter: 2025Q3

REPORT INFORMATION
  Report Type: Spontaneous
  Country: EU (occurrence: EU)
  Receive Date: 20250804
  Receipt Date: 20250808
  Transmission Date: 20251020
  Serious: Yes (Other)
  Sender: BAUSCH AND LOMB
  Company Number: EU-BAUSCH-BH-2025-015548

PATIENT
  Age: 7 Decade
  Sex: Male

DRUGS (7)
  1. AZATHIOPRINE [Suspect]
     Active Substance: AZATHIOPRINE
     Indication: Immunosuppression
     Route: 065
  2. HYDROCORTISONE BUTYRATE [Suspect]
     Active Substance: HYDROCORTISONE BUTYRATE
     Indication: Immunosuppression
     Route: 042
  3. METHYLPREDNISOLONE [Suspect]
     Active Substance: METHYLPREDNISOLONE
     Indication: Steroid therapy
     Route: 042
  4. PREDNISONE [Suspect]
     Active Substance: PREDNISONE
     Indication: Immunosuppression
     Route: 048
  5. PREDNISONE [Suspect]
     Active Substance: PREDNISONE
     Route: 042
  6. PIPERACILLIN SODIUM\TAZOBACTAM SODIUM [Concomitant]
     Active Substance: PIPERACILLIN SODIUM\TAZOBACTAM SODIUM
     Indication: Pneumonia
  7. TACROLIMUS [Concomitant]
     Active Substance: TACROLIMUS
     Indication: Immunosuppression

REACTIONS (3)
  - Septic shock [Recovered/Resolved]
  - Leukopenia [Unknown]
  - Pseudomonas infection [Recovered/Resolved]
